FAERS Safety Report 25388773 (Version 1)
Quarter: 2025Q2

REPORT INFORMATION
  Report Type: Spontaneous
  Country: CN (occurrence: CN)
  Receive Date: 20250603
  Receipt Date: 20250603
  Transmission Date: 20250717
  Serious: Yes (Disabling)
  Sender: TAKEDA
  Company Number: CN-HUTCHMED LIMITED-HMP2025CN01319

PATIENT
  Age: 41 Year
  Sex: Male
  Weight: 62 kg

DRUGS (1)
  1. FRUQUINTINIB [Suspect]
     Active Substance: FRUQUINTINIB
     Indication: Colon cancer
     Dosage: 5 MILLIGRAM, QD
     Dates: start: 20250321, end: 20250523

REACTIONS (3)
  - Joint range of motion decreased [Not Recovered/Not Resolved]
  - Pain [Recovering/Resolving]
  - Palmar-plantar erythrodysaesthesia syndrome [Not Recovered/Not Resolved]

NARRATIVE: CASE EVENT DATE: 20250523
